FAERS Safety Report 10259661 (Version 1)
Quarter: 2014Q2

REPORT INFORMATION
  Report Type: Spontaneous
  Country: US (occurrence: US)
  Receive Date: 20140625
  Receipt Date: 20140625
  Transmission Date: 20141212
  Serious: Yes (Other)
  Sender: FDA-Public Use
  Company Number: US-BAYER-2014-094742

PATIENT
  Age: 31 Year
  Sex: Female
  Weight: 117.46 kg

DRUGS (6)
  1. YASMIN [Suspect]
  2. YAZ [Suspect]
  3. CITALOPRAM HYDROBROMIDE [Concomitant]
     Dosage: 20 MG, UNK
  4. CELEXA [Concomitant]
  5. ADVIL [Concomitant]
  6. CEPHALEXIN [Concomitant]
     Indication: CELLULITIS

REACTIONS (1)
  - Thrombophlebitis superficial [None]
